FAERS Safety Report 8295939-3 (Version None)
Quarter: 2012Q2

REPORT INFORMATION
  Report Type: 
  Country: None (occurrence: None)
  Receive Date: 20120418
  Receipt Date: 20120406
  Transmission Date: 20120825
  Serious: Yes (Hospitalization)
  Sender: FDA-Public Use
  Company Number: US-VERTEX PHARMACEUTICALS INC.-AE-2012-005055

PATIENT
  Sex: Male
  Weight: 83.99 kg

DRUGS (3)
  1. RIBAVIRIN [Concomitant]
     Indication: HEPATITIS C
     Route: 048
     Dates: start: 20120224, end: 20120405
  2. INCIVEK [Suspect]
     Indication: HEPATITIS C
     Route: 048
     Dates: start: 20120224, end: 20120405
  3. PEGASYS [Concomitant]
     Indication: HEPATITIS C
     Route: 058
     Dates: start: 20120224, end: 20120405

REACTIONS (7)
  - PRURITUS [None]
  - NAUSEA [None]
  - FATIGUE [None]
  - INFLUENZA LIKE ILLNESS [None]
  - IRRITABILITY [None]
  - PANCREATITIS [None]
  - RASH [None]
